FAERS Safety Report 7592494-8 (Version None)
Quarter: 2011Q3

REPORT INFORMATION
  Report Type: 
  Country: None (occurrence: None)
  Receive Date: 20110706
  Receipt Date: 20110624
  Transmission Date: 20111222
  Serious: Yes (Hospitalization, Other)
  Sender: FDA-Public Use
  Company Number: US-BAYER-2011-005106

PATIENT
  Age: 39 Year
  Sex: Female
  Weight: 113.38 kg

DRUGS (9)
  1. YASMIN [Suspect]
     Dosage: UNK
     Dates: start: 20010101, end: 20070101
  2. ZANTAC [Concomitant]
     Dosage: 75 MG, QD
  3. POTASSIUM CHLORIDE [Concomitant]
     Dosage: 400 MG, QD
  4. LASIX [Concomitant]
     Dosage: 40 MG, QD
  5. MAGNESIUM OXIDE [Concomitant]
     Dosage: 400 MG, QD
  6. YAZ [Suspect]
     Dosage: UNK
     Dates: start: 20010101, end: 20070101
  7. LISINOPRIL [Concomitant]
     Dosage: 2.5 MG, QD
  8. ALDACTONE [Concomitant]
     Dosage: 250 MG, QD
  9. ADVAIR DISKUS 100/50 [Concomitant]
     Dosage: UNK

REACTIONS (5)
  - TRANSIENT ISCHAEMIC ATTACK [None]
  - CEREBROVASCULAR ACCIDENT [None]
  - DEPRESSION [None]
  - ANXIETY [None]
  - PAIN [None]
